FAERS Safety Report 5505614-3 (Version None)
Quarter: 2007Q4

REPORT INFORMATION
  Report Type: 
  Country: None (occurrence: None)
  Receive Date: 20071102
  Receipt Date: 20071030
  Transmission Date: 20080405
  Serious: Yes (Other)
  Sender: FDA-Public Use
  Company Number: PR-ASTRAZENECA-2007UW25056

PATIENT
  Age: 492 Month
  Sex: Female

DRUGS (2)
  1. ATENOLOL [Suspect]
     Route: 048
  2. VASOTEC [Concomitant]

REACTIONS (1)
  - CEREBROVASCULAR ACCIDENT [None]
